FAERS Safety Report 4498050-2 (Version None)
Quarter: 2004Q4

REPORT INFORMATION
  Report Type: 
  Country: None (occurrence: None)
  Receive Date: 20041109
  Receipt Date: 20041109
  Transmission Date: 20050328
  Serious: Yes (Hospitalization)
  Sender: FDA-Public Use
  Company Number: None

PATIENT
  Age: 48 Year
  Sex: Female
  Weight: 129.5 kg

DRUGS (16)
  1. CYTOXAN [Suspect]
     Indication: CHEMOTHERAPY
     Dosage: 4400MG   QD    INTRAVENOUS
     Route: 042
     Dates: start: 20040829, end: 20040830
  2. BUSULFAN [Suspect]
     Dosage: 74MG  QD  INTRAVENOUS
     Route: 042
     Dates: start: 20040825, end: 20040828
  3. URSODIAL [Concomitant]
  4. METOPROLOL [Concomitant]
  5. CLONIDINE [Concomitant]
  6. ACYCLOVIR [Concomitant]
  7. VORICONAZOLE [Concomitant]
  8. FLAGYL [Concomitant]
  9. VANCOMYCIN [Concomitant]
  10. METHYLPREDNISONE [Concomitant]
  11. SERTRALINE HCL [Concomitant]
  12. PANTOPRAZOLE [Concomitant]
  13. MMF [Concomitant]
  14. EPO [Concomitant]
  15. IMDUR [Concomitant]
  16. DIGOXIN [Concomitant]

REACTIONS (8)
  - ANOREXIA [None]
  - BLOOD BILIRUBIN ABNORMAL [None]
  - CARDIAC FAILURE CONGESTIVE [None]
  - CYTOMEGALOVIRUS VIRAEMIA [None]
  - GASTROINTESTINAL HAEMORRHAGE [None]
  - HYPOXIA [None]
  - RENAL FAILURE [None]
  - STEM CELL TRANSPLANT [None]
